FAERS Safety Report 24133542 (Version 1)
Quarter: 2024Q3

REPORT INFORMATION
  Report Type: Spontaneous
  Country: US (occurrence: None)
  Receive Date: 20240724
  Receipt Date: 20240724
  Transmission Date: 20241017
  Serious: Yes (Hospitalization)
  Sender: Public
  Company Number: None

PATIENT
  Age: 73 Year
  Sex: Female
  Weight: 91.2 kg

DRUGS (15)
  1. OZEMPIC [Suspect]
     Active Substance: SEMAGLUTIDE
     Indication: Type 2 diabetes mellitus
     Dosage: OTHER FREQUENCY : ONCE WEEKLY;?
     Route: 058
     Dates: start: 20240618, end: 20240715
  2. Aspirin [Concomitant]
  3. DEXAMETHASONE [Concomitant]
  4. DULOXETINE [Concomitant]
  5. ETANERCEPT [Concomitant]
  6. INSULIN [Concomitant]
  7. INSULIN LISPRO [Concomitant]
  8. METHIMAZOLE [Concomitant]
  9. METHOTREXATE [Concomitant]
  10. METOPROLOL SUCCINATE [Concomitant]
  11. PANTOPRAZOLE [Concomitant]
  12. PIOGLITAZONE [Concomitant]
  13. ROSUVASTATIN [Concomitant]
  14. SPIRONOLACTONE [Concomitant]
  15. FOLIC ACID [Concomitant]

REACTIONS (11)
  - Asthenia [None]
  - Confusional state [None]
  - Dysuria [None]
  - Visual impairment [None]
  - Weight decreased [None]
  - Hyponatraemia [None]
  - Hyperkalaemia [None]
  - Hypomagnesaemia [None]
  - Blood creatinine increased [None]
  - Urinary tract infection [None]
  - Cerebral small vessel ischaemic disease [None]

NARRATIVE: CASE EVENT DATE: 20240715
